FAERS Safety Report 9259069 (Version 2)
Quarter: 2013Q2

REPORT INFORMATION
  Report Type: Report from Study
  Country: AU (occurrence: AU)
  Receive Date: 20130426
  Receipt Date: 20130503
  Transmission Date: 20140414
  Serious: Yes (Hospitalization)
  Sender: FDA-Public Use
  Company Number: AU-AMGEN-AUSCT2013018206

PATIENT
  Age: 62 Year
  Sex: Male

DRUGS (12)
  1. PANITUMUMAB [Suspect]
     Indication: BILE DUCT CANCER
     Dosage: 550 MG, UNK
  2. CISPLATIN [Concomitant]
     Indication: BILE DUCT CANCER
     Dosage: 45 MG, UNK
  3. GEMCITABINE [Concomitant]
     Indication: BILE DUCT CANCER
     Dosage: 1750 MG, UNK
  4. ASPIRIN [Concomitant]
     Indication: PROPHYLAXIS
     Dosage: 600 MG, BID
     Route: 048
     Dates: start: 2013
  5. DEXAMETHASONE [Concomitant]
     Dosage: 4 MG, QD
     Route: 048
     Dates: start: 201303
  6. DOXYCYCLINE [Concomitant]
     Indication: PROPHYLAXIS
     Dosage: 100 MG, BID
     Route: 048
     Dates: start: 201303
  7. ENDONE [Concomitant]
     Dosage: 5 MG, AS NECESSARY
     Route: 048
     Dates: start: 2013
  8. ESOMEPRAZOLE [Concomitant]
     Dosage: 40 MG, QD
     Route: 048
     Dates: start: 2013
  9. HYDROCORTISONE [Concomitant]
     Indication: PROPHYLAXIS
     Dosage: UNK UNK, QD
     Route: 061
     Dates: start: 201303
  10. METOCLOPRAMIDE [Concomitant]
     Indication: PROPHYLAXIS
     Dosage: 10 MG, AS NECESSARY
     Route: 048
     Dates: start: 201303
  11. MORPHINE [Concomitant]
     Dosage: UNK
     Route: 048
     Dates: start: 2013
  12. NULAX [Concomitant]
     Dosage: UNK
     Route: 048
     Dates: start: 2013

REACTIONS (1)
  - Diarrhoea [Recovered/Resolved]
